FAERS Safety Report 6108171-6 (Version None)
Quarter: 2009Q1

REPORT INFORMATION
  Report Type: 
  Country: None (occurrence: None)
  Receive Date: 20090309
  Receipt Date: 20090223
  Transmission Date: 20090719
  Serious: Yes (Other)
  Sender: FDA-Public Use
  Company Number: US-ROCHE-600110

PATIENT
  Sex: Male
  Weight: 81.6 kg

DRUGS (6)
  1. CAPECITABINE [Suspect]
     Indication: GASTRIC CANCER
     Dosage: 9 DAYS ON, 7 DAYS OFF, DOSE REPORTED: 1500 MG BID X 9 DAYS
     Route: 048
     Dates: start: 20071001, end: 20081114
  2. TYLENOL [Concomitant]
  3. PROSCAR [Concomitant]
  4. ADVAIR HFA [Concomitant]
  5. PROTONIX [Concomitant]
  6. ZOCOR [Concomitant]

REACTIONS (1)
  - METASTASES TO CENTRAL NERVOUS SYSTEM [None]
